FAERS Safety Report 22890133 (Version 4)
Quarter: 2024Q3

REPORT INFORMATION
  Report Type: Report from Study
  Country: CO (occurrence: CO)
  Receive Date: 20230831
  Receipt Date: 20240905
  Transmission Date: 20241017
  Serious: Yes (Hospitalization, Other)
  Sender: IPSEN
  Company Number: CO-KOREA IPSEN Pharma-2023-20052

PATIENT
  Age: 63 Year
  Sex: Female
  Weight: 69 kg

DRUGS (8)
  1. LANREOTIDE ACETATE [Suspect]
     Active Substance: LANREOTIDE ACETATE
     Indication: Acromegaly
     Route: 058
     Dates: start: 20190927
  2. VITAMIN D3 [Concomitant]
     Active Substance: CHOLECALCIFEROL
     Indication: Bone disorder
     Dosage: 2 PILLS EVERY 24 HOURS, 2 DRAGEES EVERY 24 HOURS AS NEEDED.
     Route: 048
     Dates: start: 2021
  3. AMLODIPINE [Concomitant]
     Active Substance: AMLODIPINE BESYLATE
     Indication: Hypertension
     Dosage: 1 PILL EVERY 24 HOURS, 1 TABLET EVERY 24 HOURS.
     Route: 048
     Dates: start: 2017
  4. ATORVASTATIN [Concomitant]
     Active Substance: ATORVASTATIN
     Indication: Dyslipidaemia
     Dosage: 1 PILL EVERY 24 HOURS, 1 TABLET EVERY 24 HOURS.
     Route: 048
     Dates: start: 2017
  5. ATORVASTATIN [Concomitant]
     Active Substance: ATORVASTATIN
     Indication: Hyperlipidaemia
  6. ENOXAPARIN [Concomitant]
     Active Substance: ENOXAPARIN
     Indication: Anticoagulant therapy
     Dosage: STARTED 6 DAYS PRIOR OF SURGERY
     Route: 058
  7. CITRAGEL [Concomitant]
     Indication: Bone disorder
     Dosage: 1.500 MG + 200 IU 1 TABLET EVERY 24 HOURS, 1 TABLET EVERY 24 HOURS
     Dates: start: 20230909, end: 20230923
  8. CABERGOLINE [Concomitant]
     Active Substance: CABERGOLINE
     Indication: Acromegaly
     Dosage: 1 TABLET PER WEEK ON WEDNESDAYS AND SUNDAYS
     Route: 048
     Dates: start: 20240612

REACTIONS (16)
  - Gastroenteritis viral [Recovered/Resolved]
  - Ear neoplasm [Unknown]
  - Disease progression [Not Recovered/Not Resolved]
  - Decreased appetite [Not Recovered/Not Resolved]
  - Diarrhoea [Not Recovered/Not Resolved]
  - Discomfort [Not Recovered/Not Resolved]
  - Dizziness [Not Recovered/Not Resolved]
  - Headache [Not Recovered/Not Resolved]
  - Weight decreased [Unknown]
  - Insomnia [Unknown]
  - Depressed mood [Unknown]
  - Blood growth hormone increased [Unknown]
  - Pain in extremity [Not Recovered/Not Resolved]
  - Gait disturbance [Not Recovered/Not Resolved]
  - Condition aggravated [Recovered/Resolved]
  - Illness [Unknown]

NARRATIVE: CASE EVENT DATE: 20190901
